FAERS Safety Report 5713070-5 (Version None)
Quarter: 2008Q2

REPORT INFORMATION
  Report Type: 
  Country: None (occurrence: None)
  Receive Date: 20080422
  Receipt Date: 20080410
  Transmission Date: 20081010
  Serious: Yes (Hospitalization)
  Sender: FDA-Public Use
  Company Number: IT-WYE-H03146808

PATIENT
  Sex: Male

DRUGS (11)
  1. CEFIXORAL [Suspect]
     Indication: PYREXIA
     Dosage: 250MG (FREQUENCY UNKNOWN)
     Route: 048
     Dates: start: 20080204, end: 20080205
  2. NUREFLEX [Concomitant]
     Dosage: UNKNOWN
     Route: 048
     Dates: start: 20080206, end: 20080206
  3. AZITHROMYCIN [Concomitant]
     Dosage: UNKNOWN
  4. PARACETAMOL [Concomitant]
     Dosage: UNKNOWN
     Route: 048
     Dates: start: 20080203
  5. FLUCONAZOLE [Concomitant]
     Dosage: UNKNOWN
     Route: 048
  6. OXATOMIDE [Concomitant]
     Dosage: UNKNOWN
     Dates: start: 20080205
  7. KLACID [Concomitant]
     Dosage: UNKNOWN
     Route: 048
  8. RANITIDINE [Concomitant]
     Dosage: UNKNOWN
     Route: 048
  9. MEROPENEM [Concomitant]
     Dosage: UNKNOWN
     Route: 048
  10. CEFTRIAXONE [Suspect]
     Indication: PYREXIA
     Dosage: 1 MG (FREQUENCY UNKNOWN)
     Route: 042
     Dates: start: 20080205, end: 20080205
  11. BETAMETHASONE [Concomitant]
     Dosage: UNKNOWN
     Route: 048
     Dates: start: 20080205

REACTIONS (4)
  - ERYTHEMA MULTIFORME [None]
  - PERICARDIAL EFFUSION [None]
  - SEPSIS [None]
  - STEVENS-JOHNSON SYNDROME [None]
